FAERS Safety Report 5477955-X (Version None)
Quarter: 2007Q4

REPORT INFORMATION
  Report Type: 
  Country: None (occurrence: None)
  Receive Date: 20071005
  Receipt Date: 20070927
  Transmission Date: 20080405
  Serious: Yes (Hospitalization)
  Sender: FDA-Public Use
  Company Number: US-JNJFOC-20070703561

PATIENT
  Sex: Female
  Weight: 56.7 kg

DRUGS (1)
  1. REMICADE [Suspect]
     Indication: CROHN'S DISEASE
     Route: 042
     Dates: start: 20030301, end: 20061201

REACTIONS (6)
  - ABDOMINAL DISTENSION [None]
  - CANDIDIASIS [None]
  - FATIGUE [None]
  - GASTROINTESTINAL NECROSIS [None]
  - HEADACHE [None]
  - OESOPHAGEAL STENOSIS [None]
